FAERS Safety Report 23897220 (Version 1)
Quarter: 2024Q2

REPORT INFORMATION
  Report Type: Spontaneous
  Country: FR (occurrence: FR)
  Receive Date: 20240524
  Receipt Date: 20240524
  Transmission Date: 20240716
  Serious: Yes (Other)
  Sender: FDA-Public Use
  Company Number: FR-JNJFOC-20240549300

PATIENT
  Age: 64 Year
  Sex: Female

DRUGS (3)
  1. TREMFYA [Suspect]
     Active Substance: GUSELKUMAB
     Indication: Psoriasis
     Route: 065
  2. TREMFYA [Suspect]
     Active Substance: GUSELKUMAB
     Indication: Systemic lupus erythematosus
  3. TREMFYA [Suspect]
     Active Substance: GUSELKUMAB
     Indication: Spondyloarthropathy

REACTIONS (1)
  - Dilated cardiomyopathy [Unknown]
